FAERS Safety Report 18567718 (Version 4)
Quarter: 2021Q3

REPORT INFORMATION
  Report Type: Other
  Country: DE (occurrence: DE)
  Receive Date: 20201202
  Receipt Date: 20210719
  Transmission Date: 20211014
  Serious: No
  Sender: FDA-Public Use
  Company Number: DE-ROCHE-2356371

PATIENT
  Age: 55 Year
  Sex: Female

DRUGS (7)
  1. OCREVUS [Suspect]
     Active Substance: OCRELIZUMAB
     Route: 042
     Dates: start: 202012
  2. OCREVUS [Suspect]
     Active Substance: OCRELIZUMAB
     Route: 042
     Dates: start: 20200526
  3. OCREVUS [Suspect]
     Active Substance: OCRELIZUMAB
     Indication: PRIMARY PROGRESSIVE MULTIPLE SCLEROSIS
     Route: 042
     Dates: start: 20171101
  4. L?THYROXINE [Concomitant]
     Active Substance: LEVOTHYROXINE
  5. FAMPYRA [Concomitant]
     Active Substance: DALFAMPRIDINE
  6. OCREVUS [Suspect]
     Active Substance: OCRELIZUMAB
     Route: 042
  7. OCREVUS [Suspect]
     Active Substance: OCRELIZUMAB
     Route: 042
     Dates: start: 20210621

REACTIONS (8)
  - Tonsillitis [Recovered/Resolved]
  - Liver function test increased [Recovered/Resolved]
  - Immunoglobulins abnormal [Recovered/Resolved]
  - White blood cell count decreased [Recovered/Resolved]
  - Myopia [Not Recovered/Not Resolved]
  - COVID-19 [Recovered/Resolved]
  - Lenticular opacities [Recovering/Resolving]
  - Nasopharyngitis [Recovered/Resolved]

NARRATIVE: CASE EVENT DATE: 20190705
